FAERS Safety Report 5650430-5 (Version None)
Quarter: 2008Q1

REPORT INFORMATION
  Report Type: 
  Country: None (occurrence: None)
  Receive Date: 20080303
  Receipt Date: 20080224
  Transmission Date: 20080703
  Serious: Yes (Other)
  Sender: FDA-Public Use
  Company Number: 2008SP003934

PATIENT
  Age: 77 Year
  Sex: Male
  Weight: 93 kg

DRUGS (10)
  1. DESLORATADINE [Suspect]
     Indication: DRUG USE FOR UNKNOWN INDICATION
     Dosage: 5 MG ONCE PO
     Route: 048
  2. NORVASC [Concomitant]
  3. CRESTOR [Concomitant]
  4. ASAPHEN EC [Concomitant]
  5. SURMONTIL [Concomitant]
  6. LANOXIN [Concomitant]
  7. IBUPROFEN [Concomitant]
  8. NAPROXEN [Concomitant]
  9. MICARDIS [Concomitant]
  10. NEURONTIN [Concomitant]

REACTIONS (3)
  - ARRHYTHMIA [None]
  - BLOOD PRESSURE INCREASED [None]
  - HEART RATE INCREASED [None]
